FAERS Safety Report 10756112 (Version 4)
Quarter: 2015Q2

REPORT INFORMATION
  Report Type: Spontaneous
  Country: IT (occurrence: IT)
  Receive Date: 20150202
  Receipt Date: 20150508
  Transmission Date: 20150821
  Serious: Yes (Hospitalization)
  Sender: FDA-Public Use
  Company Number: IT-PFIZER INC-2015042616

PATIENT
  Age: 37 Year
  Sex: Female

DRUGS (2)
  1. XANAX [Suspect]
     Active Substance: ALPRAZOLAM
     Dosage: 120 ML, TOTAL
     Route: 048
     Dates: start: 20140911, end: 20140911
  2. DIVIDOL [Suspect]
     Active Substance: VIMINOL P-HYDROXYBENZOATE
     Indication: INTERVERTEBRAL DISC PROTRUSION
     Dosage: 2.4 G, TOTAL
     Route: 048
     Dates: start: 20140911, end: 20140911

REACTIONS (3)
  - Drug abuse [Recovered/Resolved]
  - Asthenia [Recovering/Resolving]
  - Confusional state [Recovering/Resolving]

NARRATIVE: CASE EVENT DATE: 20140911
